FAERS Safety Report 10882827 (Version 1)
Quarter: 2015Q1

REPORT INFORMATION
  Report Type: Report from Study
  Country: DE (occurrence: DE)
  Receive Date: 20150303
  Receipt Date: 20150303
  Transmission Date: 20150721
  Serious: Yes (Hospitalization)
  Sender: FDA-Public Use
  Company Number: DE-ABBVIE-15K-062-1345664-00

PATIENT
  Age: 48 Year
  Sex: Female
  Weight: 89 kg

DRUGS (3)
  1. HUMIRA [Suspect]
     Active Substance: ADALIMUMAB
     Indication: RHEUMATOID ARTHRITIS
     Route: 058
     Dates: start: 20101124
  2. HUMIRA [Suspect]
     Active Substance: ADALIMUMAB
     Route: 058
     Dates: start: 201410
  3. QUENSYL [Concomitant]
     Active Substance: HYDROXYCHLOROQUINE
     Indication: PRODUCT USED FOR UNKNOWN INDICATION
     Route: 048
     Dates: start: 20110601

REACTIONS (10)
  - Inflammatory marker increased [Recovering/Resolving]
  - Cholelithiasis [Recovered/Resolved]
  - Haemoglobin decreased [Unknown]
  - Chest X-ray abnormal [Unknown]
  - Cholecystitis chronic [Recovered/Resolved]
  - Prothrombin time shortened [Unknown]
  - Low density lipoprotein decreased [Unknown]
  - Blood lactate dehydrogenase increased [Unknown]
  - Hepatic steatosis [Unknown]
  - Platelet count increased [Unknown]

NARRATIVE: CASE EVENT DATE: 201407
